FAERS Safety Report 9757690 (Version 3)
Quarter: 2014Q2

REPORT INFORMATION
  Report Type: Report from Study
  Country: US (occurrence: US)
  Receive Date: 20131216
  Receipt Date: 20140425
  Transmission Date: 20141212
  Serious: Yes (Hospitalization)
  Sender: FDA-Public Use
  Company Number: US-BIOGENIDEC-2013BI118058

PATIENT
  Age: 31 Year
  Sex: Female
  Weight: 47 kg

DRUGS (2)
  1. TYSABRI [Suspect]
     Indication: CROHN^S DISEASE
     Route: 042
     Dates: start: 20130213, end: 20131101
  2. HYOSCYAMINE [Concomitant]
     Indication: ABDOMINAL PAIN
     Dates: start: 201310

REACTIONS (1)
  - Large intestine perforation [Recovered/Resolved]
